FAERS Safety Report 21366622 (Version 3)
Quarter: 2023Q2

REPORT INFORMATION
  Report Type: Report from Study
  Country: US (occurrence: US)
  Receive Date: 20220923
  Receipt Date: 20230425
  Transmission Date: 20230722
  Serious: Yes (Hospitalization, Other)
  Sender: FDA-Public Use
  Company Number: US-ABBVIE-4128545

PATIENT
  Age: 62 Year
  Sex: Female

DRUGS (6)
  1. IMBRUVICA [Suspect]
     Active Substance: IBRUTINIB
     Indication: Waldenstrom^s macroglobulinaemia
     Dosage: FORM STRENGTH: 140 MILLIGRAM
     Route: 048
     Dates: start: 20171208, end: 20180504
  2. IMBRUVICA [Suspect]
     Active Substance: IBRUTINIB
     Indication: Waldenstrom^s macroglobulinaemia
     Route: 048
     Dates: start: 201805, end: 2022
  3. IMBRUVICA [Suspect]
     Active Substance: IBRUTINIB
     Indication: Waldenstrom^s macroglobulinaemia
     Route: 048
     Dates: start: 202209
  4. ATIVAN [Concomitant]
     Active Substance: LORAZEPAM
     Indication: Product used for unknown indication
  5. ELIQUIS [Concomitant]
     Active Substance: APIXABAN
     Indication: Product used for unknown indication
  6. PREVNAR 20 [Suspect]
     Active Substance: STREPTOCOCCUS PNEUMONIAE TYPE 1 CAPSULAR POLYSACCHARIDE DIPHTHERIA CRM197 PROTEIN CONJUGATE ANTIGEN\
     Indication: Product used for unknown indication
     Dosage: PREVNAR 20 VACCINE
     Route: 065

REACTIONS (13)
  - Hip surgery [Recovered/Resolved]
  - Monoplegia [Unknown]
  - Tremor [Unknown]
  - Influenza [Unknown]
  - Seizure [Unknown]
  - Vitamin B12 decreased [Unknown]
  - Unevaluable event [Recovered/Resolved]
  - Pyrexia [Recovered/Resolved]
  - Vaccination site rash [Unknown]
  - Heart rate abnormal [Recovered/Resolved]
  - Blood pressure increased [Recovered/Resolved]
  - Vaccination site warmth [Unknown]
  - Vaccination site induration [Unknown]

NARRATIVE: CASE EVENT DATE: 20220901
